FAERS Safety Report 4915790-9 (Version None)
Quarter: 2006Q1

REPORT INFORMATION
  Report Type: 
  Country: None (occurrence: None)
  Receive Date: 20060214
  Receipt Date: 20060126
  Transmission Date: 20060701
  Serious: Yes (Other)
  Sender: FDA-Public Use
  Company Number: US200601004799

PATIENT
  Age: 51 Year
  Sex: Male

DRUGS (1)
  1. ZYPREXA [Suspect]
     Dates: start: 20010101, end: 20020101

REACTIONS (8)
  - AGGRESSION [None]
  - DIVERTICULITIS [None]
  - DRUG INEFFECTIVE [None]
  - FEELING ABNORMAL [None]
  - HALLUCINATION, VISUAL [None]
  - MYOCARDIAL INFARCTION [None]
  - SUICIDAL IDEATION [None]
  - UNEVALUABLE EVENT [None]
